FAERS Safety Report 13114274 (Version 3)
Quarter: 2017Q1

REPORT INFORMATION
  Report Type: Spontaneous
  Country: JP (occurrence: JP)
  Receive Date: 20170113
  Receipt Date: 20170220
  Transmission Date: 20170428
  Serious: Yes (Other)
  Sender: FDA-Public Use
  Company Number: JP-ASTRAZENECA-2017SE03785

PATIENT
  Age: 64 Year
  Sex: Female

DRUGS (6)
  1. MAGMITT [Concomitant]
     Active Substance: MAGNESIUM OXIDE
  2. SEROQUEL [Suspect]
     Active Substance: QUETIAPINE FUMARATE
     Indication: SCHIZOPHRENIA
     Dosage: 200 MG IN THE MORNING, 400 MG AT BEDTIME, TWICE DAILY
     Route: 048
  3. RIZE [Concomitant]
     Active Substance: CLOTIAZEPAM
     Dosage: 5.0MG UNKNOWN
  4. SENNOSIDE [Concomitant]
     Active Substance: SENNOSIDES
  5. HIRNAMIN [Suspect]
     Active Substance: PHENOTHIAZINE
     Route: 065
  6. BENZALIN [Concomitant]
     Active Substance: NITRAZEPAM
     Dosage: 5.0MG UNKNOWN

REACTIONS (5)
  - Abdominal discomfort [Unknown]
  - Shock [Unknown]
  - Blood pressure decreased [Unknown]
  - Loss of consciousness [Unknown]
  - Gastrointestinal motility disorder [Unknown]

NARRATIVE: CASE EVENT DATE: 201607
